FAERS Safety Report 25706379 (Version 1)
Quarter: 2025Q3

REPORT INFORMATION
  Report Type: Spontaneous
  Country: US (occurrence: None)
  Receive Date: 20250820
  Receipt Date: 20250820
  Transmission Date: 20251020
  Serious: Yes (Hospitalization)
  Sender: FDA-CTU
  Company Number: None

PATIENT
  Age: 52 Year
  Sex: Male
  Weight: 113 kg

DRUGS (1)
  1. PONATINIB [Suspect]
     Active Substance: PONATINIB

REACTIONS (6)
  - Peripheral swelling [None]
  - Pain in extremity [None]
  - Localised infection [None]
  - Toe amputation [None]
  - Cellulitis [None]
  - Osteomyelitis acute [None]

NARRATIVE: CASE EVENT DATE: 20250728
